FAERS Safety Report 6637076-7 (Version None)
Quarter: 2010Q1

REPORT INFORMATION
  Report Type: 
  Country: None (occurrence: None)
  Receive Date: 20100311
  Receipt Date: 20100224
  Transmission Date: 20100710
  Serious: Yes (Other)
  Sender: FDA-Public Use
  Company Number: 007381

PATIENT
  Sex: Female

DRUGS (2)
  1. LEVETIRACETAM [Suspect]
     Indication: EPILEPSY
     Dosage: 3000 MG, AT CONCEPTION AND DURING FIRST AND SECOND TRIMESTER, 300 MG, AT THIRD TRIMESTER
  2. CARBAMAZEPINE [Suspect]
     Indication: EPILEPSY

REACTIONS (3)
  - COMPLEX PARTIAL SEIZURES [None]
  - DRUG EXPOSURE DURING PREGNANCY [None]
  - SIMPLE PARTIAL SEIZURES [None]
